FAERS Safety Report 19360997 (Version 1)
Quarter: 2021Q2

REPORT INFORMATION
  Report Type: Spontaneous
  Country: US (occurrence: US)
  Receive Date: 20210602
  Receipt Date: 20210602
  Transmission Date: 20210717
  Serious: No
  Sender: FDA-Public Use
  Company Number: US-MDD US OPERATIONS-USW202003-000457

PATIENT
  Sex: Female
  Weight: 94.34 kg

DRUGS (1)
  1. APOKYN [Suspect]
     Active Substance: APOMORPHINE HYDROCHLORIDE
     Indication: PRODUCT USED FOR UNKNOWN INDICATION
     Dosage: UNKNOWN

REACTIONS (5)
  - Paranoia [Unknown]
  - Off label use [Unknown]
  - Confusional state [Unknown]
  - Thinking abnormal [Unknown]
  - Impulsive behaviour [Unknown]
